FAERS Safety Report 20113074 (Version 1)
Quarter: 2021Q4

REPORT INFORMATION
  Report Type: Spontaneous
  Country: GB (occurrence: GB)
  Receive Date: 20211125
  Receipt Date: 20211125
  Transmission Date: 20220303
  Serious: Yes (Other)
  Sender: FDA-Public Use
  Company Number: GB-AVEO ONCOLOGY-2021-AVEO-GB003702

PATIENT

DRUGS (1)
  1. FOTIVDA [Suspect]
     Active Substance: TIVOZANIB HYDROCHLORIDE
     Dosage: 890 UG 2 WEEKS ON AND 2 WEEKS OFF

REACTIONS (3)
  - Cytopenia [Unknown]
  - Disease progression [Unknown]
  - Off label use [Unknown]
